FAERS Safety Report 13983073 (Version 1)
Quarter: 2017Q3

REPORT INFORMATION
  Report Type: Spontaneous
  Country: BE (occurrence: BE)
  Receive Date: 20170918
  Receipt Date: 20170918
  Transmission Date: 20171128
  Serious: Yes (Hospitalization)
  Sender: FDA-Public Use
  Company Number: BE-WEST-WARD PHARMACEUTICALS CORP.-3037250

PATIENT
  Age: 77 Year
  Sex: Male

DRUGS (14)
  1. BEVACIZUMAB. [Suspect]
     Active Substance: BEVACIZUMAB
     Indication: COLORECTAL CANCER
     Dosage: 5 UG/KG, DAY 1 OF EACH 14-DAY CYCLE
     Route: 042
     Dates: start: 20150805, end: 20150907
  2. SOLU-MEDROL [Concomitant]
     Active Substance: METHYLPREDNISOLONE SODIUM SUCCINATE
     Indication: PRODUCT USED FOR UNKNOWN INDICATION
     Dosage: 80 MG, UNK
     Route: 042
     Dates: start: 20150805, end: 20150907
  3. IRINOTECAN HCL [Suspect]
     Active Substance: IRINOTECAN HYDROCHLORIDE
     Indication: COLORECTAL CANCER
     Dosage: 180 MG/M2, DAY 1 OF EACH 14-DAY CYCLE
     Route: 042
     Dates: start: 20150805, end: 20150907
  4. NEULASTA [Concomitant]
     Active Substance: PEGFILGRASTIM
     Indication: PRODUCT USED FOR UNKNOWN INDICATION
     Dosage: 6 MG, ONCE, EVERY 2 WEEKS BEFORE CHEMOTHERAPY
     Route: 058
     Dates: start: 20150829, end: 20150829
  5. PANTOMED (DEXPANTHENOL) [Concomitant]
     Active Substance: DEXPANTHENOL
     Indication: PRODUCT USED FOR UNKNOWN INDICATION
     Dosage: 40 MG, FREQ: 1 DAY; INTERVAL: 1
     Route: 048
     Dates: start: 20150708
  6. VELIPARIB [Suspect]
     Active Substance: VELIPARIB
     Indication: COLORECTAL CANCER
     Dosage: DAYS-2 THROUGH 5 OF EACH 14-DAY CYCLE, FREQ: 2 DAY; INTERVAL: 1
     Route: 048
     Dates: start: 20150803, end: 20150911
  7. ALOXI [Concomitant]
     Active Substance: PALONOSETRON HYDROCHLORIDE
     Indication: PRODUCT USED FOR UNKNOWN INDICATION
     Dosage: 0.25 MG, ONCE, EVERY 2 WEEKS BEFORE CHEMOTHERAPY
     Route: 042
     Dates: start: 20150805, end: 20150907
  8. LEUCOVORIN /00566701/ [Concomitant]
     Active Substance: LEUCOVORIN
     Indication: PRODUCT USED FOR UNKNOWN INDICATION
     Dosage: 400 UG/M2, DAY 1 OF EACH 14-DAY CYCLE
     Route: 042
     Dates: start: 20150805, end: 20150907
  9. ATROPINE SULFATE. [Concomitant]
     Active Substance: ATROPINE SULFATE
     Indication: PRODUCT USED FOR UNKNOWN INDICATION
     Dosage: 0.5 MG, ONCE, EVERY 2 WEEKS BEFORE CHEMOTHERAPY
     Route: 058
     Dates: start: 20150805, end: 20150907
  10. MOUTH WASH [Concomitant]
     Indication: PRODUCT USED FOR UNKNOWN INDICATION
     Dosage: 5 ML, FREQ: 4 DAY; INTERVAL: 1
     Route: 002
     Dates: start: 20150805
  11. FLUOROURACIL. [Suspect]
     Active Substance: FLUOROURACIL
     Indication: COLORECTAL CANCER
     Dosage: 400 MG/M2, OVER 15 MINUTES; DAY 1 OF EACH 14-DAY CYCLE
     Route: 042
     Dates: start: 20150805, end: 20150907
  12. IMODIUM [Concomitant]
     Active Substance: LOPERAMIDE HYDROCHLORIDE
     Indication: PRODUCT USED FOR UNKNOWN INDICATION
     Dosage: 2 MG, FREQ: AS NEEDED
     Route: 048
     Dates: start: 20150803
  13. PYRIDOXINE HYDROCHLORIDE. [Concomitant]
     Active Substance: PYRIDOXINE HYDROCHLORIDE
     Indication: PRODUCT USED FOR UNKNOWN INDICATION
     Dosage: 250 MG, FREQ: 1 DAY; INTERVAL: 1
     Route: 048
     Dates: start: 20150805
  14. FLUOROURACIL. [Suspect]
     Active Substance: FLUOROURACIL
     Indication: COLORECTAL CANCER
     Dosage: 2400 UNK, OVER 46 HOURS; DAY 1 OF EACH 14-DAY CYCLE
     Route: 042
     Dates: start: 20150805, end: 20150909

REACTIONS (13)
  - Peritonitis [Unknown]
  - Candida infection [Unknown]
  - Metabolic acidosis [Unknown]
  - Clostridial sepsis [Unknown]
  - Enteritis [Recovered/Resolved]
  - Small intestinal perforation [Unknown]
  - Hyperlactacidaemia [Unknown]
  - Hypovolaemia [Unknown]
  - Enterococcal infection [Unknown]
  - Acute kidney injury [Unknown]
  - Septic shock [Unknown]
  - Pleural effusion [Unknown]
  - Dehydration [Unknown]

NARRATIVE: CASE EVENT DATE: 20150916
